FAERS Safety Report 14650172 (Version 1)
Quarter: 2018Q1

REPORT INFORMATION
  Report Type: Spontaneous
  Country: EG (occurrence: EG)
  Receive Date: 20180316
  Receipt Date: 20180316
  Transmission Date: 20180509
  Serious: Yes (Life-Threatening, Other)
  Sender: FDA-Public Use
  Company Number: EG-NOVOPROD-590046

PATIENT
  Age: 62 Year
  Sex: Female
  Weight: 62 kg

DRUGS (2)
  1. MIXTARD 30 HM PENFILL [Suspect]
     Active Substance: INSULIN HUMAN
     Indication: DIABETES MELLITUS
     Dosage: SEPARATED ON TWO INJECTIONS PER DAY ,50 IU AM  AND 50 IU PM
     Route: 058
  2. PURGATON                           /00571901/ [Concomitant]
     Indication: LAXATIVE SUPPORTIVE CARE
     Dosage: 2 TABLETS EVERY OTHER DAY STARTED AYEAR AGO
     Route: 048

REACTIONS (5)
  - Cataract [Not Recovered/Not Resolved]
  - Cataract [Recovered/Resolved]
  - Breast cancer [Recovered/Resolved]
  - Glaucoma [Unknown]
  - Hyperglycaemia [Not Recovered/Not Resolved]
